FAERS Safety Report 12059825 (Version 2)
Quarter: 2018Q2

REPORT INFORMATION
  Report Type: Report from Study
  Country: DE (occurrence: DE)
  Receive Date: 20160210
  Receipt Date: 20180522
  Transmission Date: 20180711
  Serious: No
  Sender: FDA-Public Use
  Company Number: DE-JNJFOC-20160202103

PATIENT
  Age: 5 Decade
  Sex: Male

DRUGS (3)
  1. MEZAVANT [Concomitant]
     Active Substance: MESALAMINE
     Route: 065
     Dates: start: 20131127
  2. MEZAVANT [Concomitant]
     Active Substance: MESALAMINE
     Dosage: MAX DAILY DOSE: 200 MG
     Route: 065
     Dates: start: 20140214
  3. SIMPONI [Suspect]
     Active Substance: GOLIMUMAB
     Indication: COLITIS ULCERATIVE
     Route: 058
     Dates: start: 20140324

REACTIONS (2)
  - Erythema nodosum [Not Recovered/Not Resolved]
  - Pyoderma gangrenosum [Not Recovered/Not Resolved]

NARRATIVE: CASE EVENT DATE: 20150129
